FAERS Safety Report 25971608 (Version 1)
Quarter: 2025Q4

REPORT INFORMATION
  Report Type: Spontaneous
  Country: CN (occurrence: CN)
  Receive Date: 20251029
  Receipt Date: 20251029
  Transmission Date: 20260118
  Serious: Yes (Hospitalization, Other)
  Sender: QILU ANTIBIOTICS PHARMACEUTICAL
  Company Number: CN-QILU ANTIBIOTICS PHARMACEUTICAL CO. LTD-QLA-000114-2025

PATIENT
  Age: 82 Year
  Sex: Female

DRUGS (1)
  1. CEFTRIAXONE [Suspect]
     Active Substance: CEFTRIAXONE
     Indication: Erysipelas
     Dosage: UNK
     Route: 042

REACTIONS (3)
  - Cerebral infarction [Recovered/Resolved]
  - Peripheral vein thrombosis [Recovered/Resolved]
  - Autoimmune haemolytic anaemia [Recovered/Resolved]
